FAERS Safety Report 25768696 (Version 4)
Quarter: 2025Q4

REPORT INFORMATION
  Report Type: Spontaneous
  Country: US (occurrence: US)
  Receive Date: 20250905
  Receipt Date: 20251121
  Transmission Date: 20260118
  Serious: No
  Sender: DR REDDYS
  Company Number: US-DRL-USA-USA/2025/08/013101

PATIENT
  Age: 38 Year
  Sex: Female

DRUGS (2)
  1. ZENATANE [Suspect]
     Active Substance: ISOTRETINOIN
     Indication: Acne
     Dosage: NDC NUMBER: 55111013781
     Route: 065
     Dates: start: 20250707
  2. ZENATANE [Suspect]
     Active Substance: ISOTRETINOIN
     Dosage: NDC NUMBER: 55111-0113-81
     Route: 065
     Dates: start: 20250710

REACTIONS (3)
  - Product dose omission issue [Unknown]
  - Product use issue [Unknown]
  - Headache [Unknown]

NARRATIVE: CASE EVENT DATE: 20250801
